FAERS Safety Report 7554723-6 (Version None)
Quarter: 2011Q2

REPORT INFORMATION
  Report Type: 
  Country: None (occurrence: None)
  Receive Date: 20110615
  Receipt Date: 20110615
  Transmission Date: 20111010
  Serious: No
  Sender: FDA-Public Use
  Company Number: None

PATIENT
  Age: 75 Year
  Sex: Female

DRUGS (1)
  1. NIACIN [Suspect]
     Dates: start: 20080905, end: 20100305

REACTIONS (8)
  - FATIGUE [None]
  - NAUSEA [None]
  - LIVER DISORDER [None]
  - PAIN [None]
  - HEPATOTOXICITY [None]
  - VOMITING [None]
  - ABDOMINAL PAIN [None]
  - PANCREATITIS [None]
